FAERS Safety Report 5730502-7 (Version None)
Quarter: 2008Q2

REPORT INFORMATION
  Report Type: 
  Country: None (occurrence: None)
  Receive Date: 20080507
  Receipt Date: 20080428
  Transmission Date: 20081010
  Serious: Yes (Other)
  Sender: FDA-Public Use
  Company Number: GB-ABBOTT-08P-167-0449397-00

PATIENT
  Sex: Female

DRUGS (2)
  1. HUMIRA [Suspect]
     Indication: RHEUMATOID ARTHRITIS
     Route: 058
     Dates: start: 20080109, end: 20080415
  2. MELOXICAM [Concomitant]
     Indication: PAIN
     Dates: start: 20080414

REACTIONS (6)
  - CHILLS [None]
  - EAR PAIN [None]
  - EYE IRRITATION [None]
  - MALAISE [None]
  - RASH VESICULAR [None]
  - VOMITING [None]
